FAERS Safety Report 7218134-5 (Version None)
Quarter: 2011Q1

REPORT INFORMATION
  Report Type: 
  Country: None (occurrence: None)
  Receive Date: 20110110
  Receipt Date: 20110110
  Transmission Date: 20110831
  Serious: Yes (Other)
  Sender: FDA-Public Use
  Company Number: MY-PFIZER INC-2010063894

PATIENT
  Age: 55 Year
  Sex: Female

DRUGS (2)
  1. ZITHROMAX [Suspect]
     Indication: PNEUMONIA
     Dosage: 1 G, 1X/DAY
     Route: 042
     Dates: start: 20090730
  2. SULPERAZON [Suspect]
     Indication: PNEUMONIA
     Dosage: 4 G, 1X/DAY
     Route: 042
     Dates: start: 20090730

REACTIONS (1)
  - RENAL FAILURE ACUTE [None]
